FAERS Safety Report 9344531 (Version 1)
Quarter: 2013Q2

REPORT INFORMATION
  Report Type: Spontaneous
  Country: US (occurrence: US)
  Receive Date: 20130612
  Receipt Date: 20130612
  Transmission Date: 20140414
  Serious: Yes (Hospitalization)
  Sender: FDA-Public Use
  Company Number: US-ELI_LILLY_AND_COMPANY-US201306001648

PATIENT
  Sex: Female

DRUGS (15)
  1. HUMULIN NPH [Suspect]
     Indication: DIABETES MELLITUS
     Dosage: 30 U, EACH EVENING
     Dates: start: 1995
  2. HUMALOG LISPRO [Suspect]
     Indication: DIABETES MELLITUS
     Dosage: 10 U, TID
  3. FOSINOPRIL [Concomitant]
     Dosage: 20 MG, QD
  4. CELEBREX [Concomitant]
     Dosage: 200 MG, QD
  5. SANCTURA [Concomitant]
     Dosage: 60 MG, QD
  6. VITAMIN D3 [Concomitant]
     Dosage: 1000 U, QD
  7. NORCO [Concomitant]
     Indication: PAIN
     Dosage: 1 DF, BID
  8. VITAMIN D NOS [Concomitant]
     Dosage: 50000 U, QD
  9. BUPROPION [Concomitant]
     Dosage: 100 MG, QD
  10. AMLODIPINE [Concomitant]
     Dosage: 5 MG, QD
  11. PLAVIX [Concomitant]
     Dosage: 75 MG, QD
  12. LEVOTHYROXINE [Concomitant]
     Dosage: 100 MG, QD
  13. METAXALONE [Concomitant]
     Dosage: 400 MG, EACH EVENING
  14. NEXIUM [Concomitant]
     Dosage: 40 MG, QD
  15. AMBIEN [Concomitant]
     Dosage: 10 MG, EACH EVENING

REACTIONS (4)
  - Gastrointestinal infection [Unknown]
  - Visual acuity reduced [Not Recovered/Not Resolved]
  - Asthenia [Not Recovered/Not Resolved]
  - Memory impairment [Not Recovered/Not Resolved]
